FAERS Safety Report 11131503 (Version 1)
Quarter: 2015Q2

REPORT INFORMATION
  Report Type: Spontaneous
  Country: US (occurrence: None)
  Receive Date: 20150521
  Receipt Date: 20150521
  Transmission Date: 20150821
  Serious: Yes (Other)
  Sender: FDA-Public Use
  Company Number: None

PATIENT
  Age: 65 Year
  Sex: Female
  Weight: 63.05 kg

DRUGS (8)
  1. COQ10 [Concomitant]
     Active Substance: UBIDECARENONE
  2. BIOTIN [Concomitant]
     Active Substance: BIOTIN
  3. IRON [Concomitant]
     Active Substance: IRON
  4. GARLIC. [Concomitant]
     Active Substance: GARLIC
  5. VITAMIN C [Concomitant]
     Active Substance: ASCORBIC ACID
  6. VIT B COMPLX [Concomitant]
  7. XARELTO [Suspect]
     Active Substance: RIVAROXABAN
     Indication: ATRIAL FIBRILLATION
     Route: 048
  8. VITAMIN D [Concomitant]
     Active Substance: CHOLECALCIFEROL

REACTIONS (2)
  - Contusion [None]
  - Lower extremity mass [None]

NARRATIVE: CASE EVENT DATE: 20150519
